FAERS Safety Report 9466964 (Version 2)
Quarter: 2013Q3

REPORT INFORMATION
  Report Type: Spontaneous
  Country: BR (occurrence: BR)
  Receive Date: 20130820
  Receipt Date: 20130923
  Transmission Date: 20140515
  Serious: Yes (Other)
  Sender: FDA-Public Use
  Company Number: BR-PFIZER INC-2013237771

PATIENT
  Age: 75 Year
  Sex: Female
  Weight: 73 kg

DRUGS (2)
  1. XALATAN [Suspect]
     Indication: OPEN ANGLE GLAUCOMA
     Dosage: 3 UG, ONCE A DAY (ONE DROP EACH EYE, ONCE AT NIGHT)
     Route: 047
     Dates: start: 2006
  2. XALATAN [Suspect]
     Dosage: 3 UG, 1X/DAY (ONE DROP EACH EYE, 1X/DAY)
     Route: 047
     Dates: start: 20111219

REACTIONS (1)
  - Cataract [Unknown]
